FAERS Safety Report 17556161 (Version 1)
Quarter: 2020Q1

REPORT INFORMATION
  Report Type: Spontaneous
  Country: US (occurrence: US)
  Receive Date: 20200318
  Receipt Date: 20200318
  Transmission Date: 20200409
  Serious: No
  Sender: FDA-Public Use
  Company Number: None

PATIENT
  Age: 66 Year
  Sex: Female
  Weight: 77.4 kg

DRUGS (5)
  1. ALBUTEROL SULFATE HFA [Concomitant]
     Active Substance: ALBUTEROL SULFATE
  2. EQUATE COUGH DM [Concomitant]
     Active Substance: DEXTROMETHORPHAN HYDROBROMIDE
  3. IRWIN NATURALS IMMUN O-SHIELD [Concomitant]
  4. TERBUTALINE SULFATE 2.5 MG TAB ANIP GENERIC FOR BRETHINE [Suspect]
     Active Substance: TERBUTALINE SULFATE
     Indication: BRONCHITIS
     Dosage: ?          QUANTITY:1 TABLET(S);?
     Route: 048
     Dates: start: 20200317, end: 20200318
  5. NATURES ORIGIN CARDIO Q10 [Concomitant]

REACTIONS (4)
  - Tremor [None]
  - Feeling abnormal [None]
  - Feeling cold [None]
  - Muscular weakness [None]

NARRATIVE: CASE EVENT DATE: 20200317
